FAERS Safety Report 25902584 (Version 2)
Quarter: 2025Q4

REPORT INFORMATION
  Report Type: Spontaneous
  Country: EU (occurrence: EU)
  Receive Date: 20251009
  Receipt Date: 20251024
  Transmission Date: 20260118
  Serious: Yes (Death)
  Sender: PFIZER
  Company Number: EU-PFIZER INC-PV202500119772

PATIENT
  Age: 67 Year
  Sex: Male
  Weight: 79 kg

DRUGS (6)
  1. ELREXFIO [Suspect]
     Active Substance: ELRANATAMAB-BCMM
     Indication: Plasma cell myeloma
     Dosage: 12 MG
     Route: 058
     Dates: start: 20250606
  2. ELREXFIO [Suspect]
     Active Substance: ELRANATAMAB-BCMM
     Dosage: 32 MG
     Route: 058
     Dates: start: 20250610
  3. ELREXFIO [Suspect]
     Active Substance: ELRANATAMAB-BCMM
     Dosage: 76 MG
     Route: 058
     Dates: start: 20250613, end: 20250613
  4. DEXAMETHASONE [Concomitant]
     Active Substance: DEXAMETHASONE
     Indication: Plasma cell myeloma
     Dosage: 10 MG, WEEKLY
  5. SKENAN [Concomitant]
     Active Substance: MORPHINE SULFATE
     Indication: Pain
     Dosage: 60 MG, 2X/DAY
  6. NALOXEGOL [Concomitant]
     Active Substance: NALOXEGOL
     Indication: Constipation
     Dosage: 25 MG, DAILY

REACTIONS (2)
  - Plasma cell myeloma [Fatal]
  - Malignant neoplasm progression [Fatal]

NARRATIVE: CASE EVENT DATE: 20250630
